FAERS Safety Report 7231490-7 (Version None)
Quarter: 2011Q1

REPORT INFORMATION
  Report Type: 
  Country: None (occurrence: None)
  Receive Date: 20110118
  Receipt Date: 20110106
  Transmission Date: 20110831
  Serious: Yes (Hospitalization, Other)
  Sender: FDA-Public Use
  Company Number: US-ELI_LILLY_AND_COMPANY-US200912001810

PATIENT
  Sex: Female
  Weight: 63.492 kg

DRUGS (10)
  1. PROAIR HFA [Concomitant]
  2. LEVOXYL [Concomitant]
     Dosage: 0.125 UNK, UNK
  3. FLUOXETINE [Concomitant]
     Dosage: 20 MG, UNK
  4. SINGULAIR [Concomitant]
     Dosage: 10 MG, UNK
  5. SIMVASTATIN [Concomitant]
     Dosage: 40 MG, UNK
  6. SYNTHROID [Concomitant]
  7. WARFARIN SODIUM [Concomitant]
     Dosage: 40 MG, UNK
  8. QVAR 40 [Concomitant]
  9. LISINOPRIL [Concomitant]
     Dosage: 40 MG, UNK
  10. FORTEO [Suspect]
     Indication: OSTEOPOROSIS
     Dosage: 20 UG, DAILY (1/D)

REACTIONS (4)
  - THROMBOSIS [None]
  - PANCREATITIS ACUTE [None]
  - PSEUDOCYST [None]
  - PANCREATITIS HAEMORRHAGIC [None]
